FAERS Safety Report 13662294 (Version 1)
Quarter: 2017Q2

REPORT INFORMATION
  Report Type: Report from Study
  Country: US (occurrence: US)
  Receive Date: 20170617
  Receipt Date: 20170617
  Transmission Date: 20170830
  Serious: Yes (Death)
  Sender: FDA-Public Use
  Company Number: US-TORRENT-00003092

PATIENT
  Age: 58 Year
  Sex: Female

DRUGS (5)
  1. QUETIAPINE. [Suspect]
     Active Substance: QUETIAPINE
  2. LORAZEPAM. [Suspect]
     Active Substance: LORAZEPAM
  3. ALCOHOL. [Suspect]
     Active Substance: ALCOHOL
  4. FLUOXETINE [Suspect]
     Active Substance: FLUOXETINE HYDROCHLORIDE
  5. BUPROPION HYDROCHLORIDE. [Suspect]
     Active Substance: BUPROPION HYDROCHLORIDE

REACTIONS (4)
  - Completed suicide [Fatal]
  - Intentional overdose [None]
  - Toxicity to various agents [Fatal]
  - Exposure via ingestion [None]
